FAERS Safety Report 4654524-2 (Version None)
Quarter: 2005Q2

REPORT INFORMATION
  Report Type: 
  Country: None (occurrence: None)
  Receive Date: 20050504
  Receipt Date: 20050504
  Transmission Date: 20051028
  Serious: Yes (Other)
  Sender: FDA-Public Use
  Company Number: None

PATIENT
  Age: 42 Year
  Sex: Male
  Weight: 56.6996 kg

DRUGS (5)
  1. FAMOTIDINE [Suspect]
     Dosage: 20MG TWICE DAILY BY MOUTH
     Route: 048
     Dates: start: 20050318
  2. OXYCONTIN [Concomitant]
  3. LORTAB [Concomitant]
  4. PROPRANOLOL [Concomitant]
  5. COZAAR [Concomitant]

REACTIONS (2)
  - PHARMACEUTICAL PRODUCT COMPLAINT [None]
  - THERAPEUTIC RESPONSE DECREASED [None]
